FAERS Safety Report 13074413 (Version 3)
Quarter: 2017Q1

REPORT INFORMATION
  Report Type: Report from Study
  Country: US (occurrence: US)
  Receive Date: 20161230
  Receipt Date: 20170111
  Transmission Date: 20170428
  Serious: No
  Sender: FDA-Public Use
  Company Number: PHEH2016US034002

PATIENT
  Age: 59 Year
  Sex: Female
  Weight: 102.4 kg

DRUGS (1)
  1. GILENYA [Suspect]
     Active Substance: FINGOLIMOD HYDROCHLORIDE
     Indication: MULTIPLE SCLEROSIS
     Dosage: 0.5 MG, QD
     Route: 048
     Dates: start: 20120425

REACTIONS (5)
  - Malaise [Unknown]
  - Sinusitis [Unknown]
  - Dysphonia [Unknown]
  - Cognitive disorder [Unknown]
  - Nasopharyngitis [Unknown]

NARRATIVE: CASE EVENT DATE: 201612
